FAERS Safety Report 15402182 (Version 1)
Quarter: 2018Q3

REPORT INFORMATION
  Report Type: Spontaneous
  Country: ES (occurrence: ES)
  Receive Date: 20180919
  Receipt Date: 20180919
  Transmission Date: 20181010
  Serious: Yes (Life-Threatening, Other)
  Sender: FDA-Public Use
  Company Number: ES-PFIZER INC-2018375312

PATIENT
  Age: 75 Year
  Sex: Female

DRUGS (1)
  1. BOSUTINIB [Suspect]
     Active Substance: BOSUTINIB
     Indication: CHRONIC MYELOID LEUKAEMIA
     Dosage: 500 MG, UNK
     Dates: start: 20180728, end: 20180814

REACTIONS (4)
  - Cardiac tamponade [Recovered/Resolved with Sequelae]
  - Oropharyngeal candidiasis [Recovered/Resolved with Sequelae]
  - Distributive shock [Recovered/Resolved with Sequelae]
  - Bladder candidiasis [Recovered/Resolved with Sequelae]

NARRATIVE: CASE EVENT DATE: 2018
